FAERS Safety Report 4950024-0 (Version None)
Quarter: 2006Q1

REPORT INFORMATION
  Report Type: 
  Country: None (occurrence: None)
  Receive Date: 20060315
  Receipt Date: 20060223
  Transmission Date: 20060701
  Serious: Yes (Other)
  Sender: FDA-Public Use
  Company Number: CA200602003614

PATIENT
  Age: 13 Year
  Sex: Male
  Weight: 56.7 kg

DRUGS (3)
  1. STRATTERA [Suspect]
     Indication: ATTENTION DEFICIT/HYPERACTIVITY DISORDER
     Dosage: SEE IMAGE
     Route: 048
     Dates: start: 20050501, end: 20050601
  2. STRATTERA [Suspect]
     Indication: ATTENTION DEFICIT/HYPERACTIVITY DISORDER
     Dosage: SEE IMAGE
     Route: 048
     Dates: start: 20050601, end: 20051201
  3. CLONIDINE [Concomitant]

REACTIONS (12)
  - AGGRESSION [None]
  - GRIMACING [None]
  - INAPPROPRIATE AFFECT [None]
  - INSOMNIA [None]
  - MOOD SWINGS [None]
  - NIGHTMARE [None]
  - OBSESSIVE THOUGHTS [None]
  - PERSONALITY CHANGE [None]
  - REFUSAL OF TREATMENT BY PATIENT [None]
  - SLEEP DISORDER [None]
  - SOCIAL AVOIDANT BEHAVIOUR [None]
  - SUICIDE ATTEMPT [None]
